FAERS Safety Report 18429792 (Version 1)
Quarter: 2020Q4

REPORT INFORMATION
  Report Type: Spontaneous
  Country: CN (occurrence: CN)
  Receive Date: 20201026
  Receipt Date: 20201026
  Transmission Date: 20210114
  Serious: Yes (Hospitalization, Other)
  Sender: FDA-Public Use
  Company Number: CN-ELI_LILLY_AND_COMPANY-CN202010006583

PATIENT
  Age: 84 Year
  Sex: Female
  Weight: 52.5 kg

DRUGS (3)
  1. LEVEMIR [Concomitant]
     Active Substance: INSULIN DETEMIR
     Indication: TYPE 2 DIABETES MELLITUS
     Dosage: 8 U, DAILY
  2. HUMALOG MIX50/50 [Suspect]
     Active Substance: INSULIN LISPRO
     Indication: TYPE 2 DIABETES MELLITUS
     Dosage: UNK UNK, UNKNOWN
     Route: 058
  3. HUMALOG MIX50/50 [Suspect]
     Active Substance: INSULIN LISPRO
     Dosage: 8 U, TID (8 UNITS IN THE MORNING, NOON AND NIGHT RESPECTIVELY)
     Route: 058

REACTIONS (7)
  - Blood glucose increased [Unknown]
  - Weight decreased [Unknown]
  - Hydrothorax [Unknown]
  - Deafness [Unknown]
  - Fat tissue increased [Unknown]
  - Hydronephrosis [Unknown]
  - Nasopharyngitis [Unknown]
